FAERS Safety Report 6114358-9 (Version None)
Quarter: 2009Q1

REPORT INFORMATION
  Report Type: 
  Country: None (occurrence: None)
  Receive Date: 20090312
  Receipt Date: 20090302
  Transmission Date: 20090719
  Serious: Yes (Hospitalization, Other)
  Sender: FDA-Public Use
  Company Number: US-ELI_LILLY_AND_COMPANY-US200901000466

PATIENT
  Sex: Female

DRUGS (3)
  1. FORTEO [Suspect]
     Dosage: UNK, UNK
     Dates: start: 20050101, end: 20060315
  2. FORTEO [Suspect]
     Dosage: UNK, UNK
     Dates: start: 20081101
  3. MIACALCIN [Concomitant]
     Dosage: UNK, UNK
     Dates: start: 20060315, end: 20081101

REACTIONS (7)
  - DEVICE MALFUNCTION [None]
  - FALL [None]
  - HIP FRACTURE [None]
  - LIMB INJURY [None]
  - MULTIPLE FRACTURES [None]
  - PELVIC FRACTURE [None]
  - SPINAL FRACTURE [None]
